FAERS Safety Report 9407665 (Version 2)
Quarter: 2013Q3

REPORT INFORMATION
  Report Type: Spontaneous
  Country: NZ (occurrence: NZ)
  Receive Date: 20130718
  Receipt Date: 20130905
  Transmission Date: 20140515
  Serious: Yes (Death)
  Sender: FDA-Public Use
  Company Number: NZ-MYLANLABS-2013S1014947

PATIENT
  Sex: Male

DRUGS (2)
  1. ISOTRETINOIN [Suspect]
     Indication: ACNE
     Route: 048
     Dates: start: 20080617
  2. DOXYCYCLINE [Concomitant]
     Indication: ACNE
     Dates: start: 20080417

REACTIONS (13)
  - Completed suicide [Fatal]
  - Suicidal ideation [Unknown]
  - Blood glucose abnormal [Unknown]
  - Photosensitivity reaction [Unknown]
  - Skin atrophy [Unknown]
  - Anger [Unknown]
  - Aggression [Unknown]
  - Loss of consciousness [Unknown]
  - Lip dry [Unknown]
  - Depression [Unknown]
  - Headache [Unknown]
  - Fatigue [Unknown]
  - Visual impairment [Unknown]
